FAERS Safety Report 11578218 (Version 1)
Quarter: 2015Q3

REPORT INFORMATION
  Report Type: Spontaneous
  Country: US (occurrence: US)
  Receive Date: 20150930
  Receipt Date: 20150930
  Transmission Date: 20151125
  Serious: Yes (Other)
  Sender: FDA-Public Use
  Company Number: US-AMGEN-USASP2015064677

PATIENT
  Age: 60 Year
  Sex: Female
  Weight: 56.6 kg

DRUGS (2)
  1. ERGOCALCIFEROL. [Concomitant]
     Active Substance: ERGOCALCIFEROL
     Indication: VITAMIN D DEFICIENCY
     Dosage: 50000 UNK, QWK
     Route: 048
     Dates: start: 2010
  2. PROLIA [Suspect]
     Active Substance: DENOSUMAB
     Indication: SENILE OSTEOPOROSIS
     Dosage: 60 MG, Q6MO
     Route: 058
     Dates: start: 20120312

REACTIONS (9)
  - Diarrhoea [Recovered/Resolved]
  - Malaise [Recovering/Resolving]
  - Sleep disorder [Recovered/Resolved]
  - Cough [Recovered/Resolved]
  - Fatigue [Recovered/Resolved]
  - Lymph node pain [Recovered/Resolved]
  - Abdominal pain upper [Recovered/Resolved]
  - Pulmonary congestion [Recovered/Resolved]
  - Chills [Recovering/Resolving]

NARRATIVE: CASE EVENT DATE: 20141012
